FAERS Safety Report 10905604 (Version 2)
Quarter: 2015Q1

REPORT INFORMATION
  Report Type: Spontaneous
  Country: US (occurrence: US)
  Receive Date: 20150311
  Receipt Date: 20150320
  Transmission Date: 20150721
  Serious: No
  Sender: FDA-Public Use
  Company Number: US-PFIZER INC-2015082932

PATIENT
  Age: 29 Year
  Sex: Female
  Weight: 79 kg

DRUGS (7)
  1. VENLAFAXINE HCL [Suspect]
     Active Substance: VENLAFAXINE HYDROCHLORIDE
     Indication: MENOPAUSAL SYMPTOMS
     Dosage: 75 MG, 1X/DAY
     Route: 048
     Dates: start: 201406
  2. COENZYME Q10 [Concomitant]
     Active Substance: UBIDECARENONE
     Dosage: 100 MG, 2X/DAY
     Route: 048
  3. VENLAFAXINE HCL [Suspect]
     Active Substance: VENLAFAXINE HYDROCHLORIDE
     Indication: HOT FLUSH
  4. VITAMIN D [Concomitant]
     Active Substance: CHOLECALCIFEROL
     Dosage: 5000 IU, DAILY
     Route: 048
  5. ACETYL L CARNITIN [Concomitant]
     Dosage: 500 MG, 1X/DAY
     Route: 048
  6. CURCUMIN [Concomitant]
     Active Substance: CURCUMIN
     Dosage: 500 MG, 2-3 CAPSULE, DAILY
     Route: 048
  7. EFFEXOR XR [Suspect]
     Active Substance: VENLAFAXINE HYDROCHLORIDE
     Dosage: UNK

REACTIONS (4)
  - Visual impairment [Unknown]
  - Nervous system disorder [Unknown]
  - Drug ineffective [Unknown]
  - Heart rate decreased [Unknown]
